FAERS Safety Report 8599701-3 (Version None)
Quarter: 2012Q3

REPORT INFORMATION
  Report Type: 
  Country: None (occurrence: None)
  Receive Date: 20120816
  Receipt Date: 20120809
  Transmission Date: 20120928
  Serious: Yes (Hospitalization, Other)
  Sender: FDA-Public Use
  Company Number: US-B.I. PHARMACEUTICALS,INC./RIDGEFIELD-2012-BP-18744BP

PATIENT
  Sex: Female

DRUGS (21)
  1. VITAMIN E [Concomitant]
     Dosage: 400 U
  2. AMLODIPINE BESYLATE [Suspect]
     Indication: HYPERTENSION
     Dosage: 10 MG
     Dates: start: 20120501
  3. OMEPRAZOLE [Concomitant]
     Dosage: 20 MG
  4. VITAMIN B COMPLEX CAP [Concomitant]
  5. ERGOCALCIFEROL [Concomitant]
     Dosage: 2000 U
  6. FOLIC ACID [Concomitant]
     Dosage: 1 MG
  7. VERAPAMIL [Concomitant]
     Indication: HYPERTENSION
     Dates: end: 20120101
  8. LEVOTHYROXINE SODIUM [Concomitant]
     Dosage: 100 MCG
     Dates: start: 20120101
  9. PRADAXA [Suspect]
     Route: 065
     Dates: end: 20120101
  10. ALENDRONATE SODIUM [Concomitant]
  11. MULTI-VITAMIN [Concomitant]
  12. ACETYLSALICYLIC ACID SRT [Concomitant]
     Dosage: 162 MG
     Dates: start: 20120101
  13. VITAMIN B-12 [Concomitant]
  14. HUMIRA [Suspect]
     Indication: TEMPORAL ARTERITIS
     Dosage: 2.8571 MG
     Route: 058
     Dates: start: 20100725, end: 20120401
  15. ASCORBIC ACID [Concomitant]
     Dosage: 500 MG
  16. HUMIRA [Suspect]
     Route: 058
     Dates: start: 20120601
  17. CALCIUM [Concomitant]
     Dosage: 600 MG
  18. PREDNISONE TAB [Concomitant]
     Dosage: 5 MG
  19. ATORVASTATIN [Concomitant]
     Indication: BLOOD CHOLESTEROL INCREASED
     Dosage: 10 MG
  20. LEVOTHYROXINE SODIUM [Concomitant]
     Dosage: 88 MCG
     Dates: end: 20120101
  21. DOXAZOSIN MESYLATE [Concomitant]
     Indication: HYPERTENSION

REACTIONS (9)
  - BLOOD TEST ABNORMAL [None]
  - MUSCLE FATIGUE [None]
  - FALL [None]
  - HIP FRACTURE [None]
  - THYROID NEOPLASM [None]
  - BLOOD PRESSURE SYSTOLIC INCREASED [None]
  - MUSCULAR WEAKNESS [None]
  - INJECTION SITE PAIN [None]
  - ATRIAL FIBRILLATION [None]
